FAERS Safety Report 13242392 (Version 1)
Quarter: 2017Q1

REPORT INFORMATION
  Report Type: Spontaneous
  Country: US (occurrence: US)
  Receive Date: 20170216
  Receipt Date: 20170216
  Transmission Date: 20170428
  Serious: Yes (Hospitalization, Disabling, Other)
  Sender: FDA-Public Use
  Company Number: None

PATIENT
  Age: 50 Year
  Sex: Female

DRUGS (3)
  1. ACCUTANE [Suspect]
     Active Substance: ISOTRETINOIN
  2. LITHIUM. [Concomitant]
     Active Substance: LITHIUM
  3. MOOD STABILISERS [Concomitant]

REACTIONS (3)
  - Stress [None]
  - Psychotic disorder [None]
  - Bipolar disorder [None]

NARRATIVE: CASE EVENT DATE: 20020101
